FAERS Safety Report 5284324-4 (Version None)
Quarter: 2007Q2

REPORT INFORMATION
  Report Type: 
  Country: None (occurrence: None)
  Receive Date: 20070403
  Receipt Date: 20070322
  Transmission Date: 20071010
  Serious: Yes (Hospitalization)
  Sender: FDA-Public Use
  Company Number: US-ROCHE-431646

PATIENT
  Age: 49 Year
  Sex: Male

DRUGS (15)
  1. CELLCEPT [Suspect]
     Indication: MYASTHENIA GRAVIS
     Route: 048
     Dates: start: 20000525, end: 20031215
  2. CELLCEPT [Suspect]
     Route: 048
     Dates: start: 20040114, end: 20040121
  3. CELLCEPT [Suspect]
     Route: 048
     Dates: start: 20040121
  4. HYDROCODONE [Concomitant]
     Dosage: DRUG NAME REPORTED AS HYDROCODONE APAP. STRENGTH REPORTED AS 5/500
     Dates: start: 20030117
  5. LISINOPRIL [Concomitant]
     Dates: start: 20030117
  6. QUININE SULFATE [Concomitant]
     Dosage: DRUG NAME REPORTED AS QUALAQUIN
     Dates: start: 20030117
  7. VIOXX [Concomitant]
     Dates: start: 20030404
  8. LOTRISONE [Concomitant]
     Route: 061
     Dates: start: 20030406
  9. MYTUSSIN AC [Concomitant]
     Route: 048
     Dates: start: 20031014
  10. CYCLOBENZAPRINE HCL [Concomitant]
     Route: 048
     Dates: start: 20031210
  11. FLONASE [Concomitant]
     Dosage: ROUTE REPORTED AS NASAL SPRAY
     Route: 050
     Dates: start: 20040130
  12. GUAIFENESIN [Concomitant]
     Dosage: DRUG NAME REPORTED AS GUAIFENESIN 600/PSE
     Route: 048
     Dates: start: 20040707
  13. DIFLUCAN [Concomitant]
     Route: 048
     Dates: start: 20040707
  14. CELEBREX [Concomitant]
     Route: 048
     Dates: start: 20041102
  15. ZITHROMAX [Concomitant]
     Route: 048
     Dates: start: 20041202

REACTIONS (12)
  - ABASIA [None]
  - ANAEMIA [None]
  - CLOSTRIDIAL INFECTION [None]
  - CYTOMEGALOVIRUS INFECTION [None]
  - DECUBITUS ULCER [None]
  - GENERALISED OEDEMA [None]
  - HEPATITIS [None]
  - MENINGITIS [None]
  - ORGAN FAILURE [None]
  - PNEUMONIA [None]
  - RESPIRATORY FAILURE [None]
  - SEPTIC SHOCK [None]
